FAERS Safety Report 24035861 (Version 6)
Quarter: 2025Q1

REPORT INFORMATION
  Report Type: Spontaneous
  Country: US (occurrence: US)
  Receive Date: 20240701
  Receipt Date: 20250325
  Transmission Date: 20250409
  Serious: Yes (Life-Threatening, Hospitalization, Disabling, Other)
  Sender: NOVARTIS
  Company Number: US-002147023-NVSC2024US135987

PATIENT
  Age: 53 Year
  Sex: Female
  Weight: 124 kg

DRUGS (35)
  1. GILENYA [Suspect]
     Active Substance: FINGOLIMOD HYDROCHLORIDE
     Indication: Multiple sclerosis relapse
     Dosage: 0.5 MG, QD
     Route: 048
     Dates: start: 20140901, end: 20240701
  2. GILENYA [Suspect]
     Active Substance: FINGOLIMOD HYDROCHLORIDE
     Dosage: 1 DOSAGE FORM, QD
     Route: 048
     Dates: start: 20240706
  3. FERROUS SULFATE [Concomitant]
     Active Substance: FERROUS SULFATE
     Indication: Product used for unknown indication
     Route: 065
  4. LISINOPRIL [Concomitant]
     Active Substance: LISINOPRIL
     Indication: Product used for unknown indication
     Route: 065
  5. MECLIZINE [Concomitant]
     Active Substance: MECLIZINE HYDROCHLORIDE
     Indication: Product used for unknown indication
     Route: 065
  6. PRILOSEC [Concomitant]
     Active Substance: OMEPRAZOLE MAGNESIUM
     Indication: Product used for unknown indication
     Route: 065
  7. CRESTOR [Concomitant]
     Active Substance: ROSUVASTATIN CALCIUM
     Indication: Product used for unknown indication
     Route: 065
  8. VITAMIN D [Concomitant]
     Active Substance: VITAMIN D NOS
     Indication: Product used for unknown indication
     Route: 065
  9. VITAMIN B12 [Concomitant]
     Active Substance: CYANOCOBALAMIN
     Indication: Product used for unknown indication
     Route: 065
  10. DEXTROSE [Concomitant]
     Active Substance: DEXTROSE MONOHYDRATE
     Indication: Hypoglycaemia
     Route: 042
     Dates: start: 20240707
  11. DEXTROSE [Concomitant]
     Active Substance: DEXTROSE MONOHYDRATE
     Route: 042
     Dates: start: 20240707
  12. DEXTROSE [Concomitant]
     Active Substance: DEXTROSE MONOHYDRATE
     Route: 042
     Dates: start: 20240707
  13. LOVENOX [Concomitant]
     Active Substance: ENOXAPARIN SODIUM
     Indication: Product used for unknown indication
     Dosage: 40 MG, QD
     Route: 058
     Dates: start: 20240707
  14. DEXTROSE [Concomitant]
     Active Substance: DEXTROSE MONOHYDRATE
     Indication: Hypoglycaemia
     Route: 048
  15. HUMALOG [Concomitant]
     Active Substance: INSULIN LISPRO
     Indication: Product used for unknown indication
     Dosage: UNK, Q4H (0-8 UNITS)
     Route: 058
     Dates: start: 20240708, end: 20240708
  16. MAGNESIUM SULFATE [Concomitant]
     Active Substance: MAGNESIUM SULFATE
     Indication: Hypomagnesaemia
     Route: 065
  17. MAGNESIUM SULFATE [Concomitant]
     Active Substance: MAGNESIUM SULFATE
     Route: 065
  18. ONDANSETRON [Concomitant]
     Active Substance: ONDANSETRON
     Indication: Nausea
     Dosage: 4 MG, Q4H IV PUSH PRN
     Route: 065
  19. ONDANSETRON [Concomitant]
     Active Substance: ONDANSETRON
     Indication: Vomiting
  20. TUBERCULIN PURIFIED PROTEIN DERIVATIVE [Concomitant]
     Active Substance: TUBERCULIN PURIFIED PROTEIN DERIVATIVE
     Indication: Product used for unknown indication
     Route: 065
     Dates: start: 20240711
  21. LORAZEPAM [Concomitant]
     Active Substance: LORAZEPAM
     Indication: Anxiety
     Dosage: 0.5 DOSAGE FORM, Q4H PRN ANXITY, 30 DAYS
     Route: 048
     Dates: start: 20240716, end: 20240815
  22. LORAZEPAM [Concomitant]
     Active Substance: LORAZEPAM
     Indication: Nausea
  23. METOPROLOL [Concomitant]
     Active Substance: METOPROLOL
     Indication: Product used for unknown indication
     Route: 042
     Dates: start: 20240709, end: 20240709
  24. METOPROLOL [Concomitant]
     Active Substance: METOPROLOL
     Route: 042
     Dates: start: 20240710, end: 20240710
  25. METOPROLOL [Concomitant]
     Active Substance: METOPROLOL
     Route: 042
     Dates: start: 20240710, end: 20240710
  26. MORPHINE [Concomitant]
     Active Substance: MORPHINE
     Indication: Pain
     Route: 042
     Dates: start: 20240710, end: 20240716
  27. MORPHINE [Concomitant]
     Active Substance: MORPHINE
     Indication: Constipation
     Route: 048
     Dates: start: 20240716, end: 20240815
  28. ALCOHOL [Concomitant]
     Active Substance: ALCOHOL
     Indication: Product used for unknown indication
     Route: 065
  29. PHENCYCLIDINE [Concomitant]
     Active Substance: PHENCYCLIDINE
     Indication: Product used for unknown indication
     Route: 065
  30. COCAINE [Concomitant]
     Active Substance: COCAINE
     Indication: Product used for unknown indication
     Route: 065
  31. AMPHETAMINE [Concomitant]
     Active Substance: AMPHETAMINE
     Indication: Product used for unknown indication
     Route: 065
  32. METHADONE [Concomitant]
     Active Substance: METHADONE HYDROCHLORIDE
     Indication: Product used for unknown indication
     Route: 065
  33. FENTANYL [Concomitant]
     Active Substance: FENTANYL
     Indication: Product used for unknown indication
     Route: 065
  34. OXYCODONE [Concomitant]
     Active Substance: OXYCODONE
     Indication: Product used for unknown indication
     Route: 065
  35. KCL [Concomitant]
     Active Substance: POTASSIUM CHLORIDE
     Indication: Hypokalaemia
     Route: 065
     Dates: start: 20240707

REACTIONS (23)
  - Progressive multifocal leukoencephalopathy [Not Recovered/Not Resolved]
  - Multiple sclerosis relapse [Not Recovered/Not Resolved]
  - Urinary retention [Unknown]
  - Dysphagia [Unknown]
  - Type 2 diabetes mellitus [Unknown]
  - Obesity [Not Recovered/Not Resolved]
  - Malnutrition [Not Recovered/Not Resolved]
  - Hypernatraemia [Unknown]
  - Acidosis [Unknown]
  - Aphasia [Unknown]
  - Essential hypertension [Unknown]
  - Dehydration [Unknown]
  - Cholelithiasis [Unknown]
  - Transaminases abnormal [Unknown]
  - Asthenia [Unknown]
  - Dyspnoea [Unknown]
  - Confusional state [Unknown]
  - Cognitive disorder [Unknown]
  - Mental status changes [Unknown]
  - Hyperbilirubinaemia [Unknown]
  - Hemiparesis [Unknown]
  - Lethargy [Unknown]
  - Hypophagia [Unknown]

NARRATIVE: CASE EVENT DATE: 20240706
